FAERS Safety Report 24225196 (Version 2)
Quarter: 2024Q3

REPORT INFORMATION
  Report Type: Spontaneous
  Country: MX (occurrence: MX)
  Receive Date: 20240820
  Receipt Date: 20240909
  Transmission Date: 20241016
  Serious: Yes (Other)
  Sender: CSL BEHRING
  Company Number: MX-BEH-2024177000

PATIENT

DRUGS (1)
  1. ALBUMIN HUMAN [Suspect]
     Active Substance: ALBUMIN HUMAN
     Dosage: UNK, 2 VIALS
     Route: 065

REACTIONS (2)
  - Suspected counterfeit product [Unknown]
  - Product with quality issue administered [Unknown]
